FAERS Safety Report 7595527-8 (Version None)
Quarter: 2011Q3

REPORT INFORMATION
  Report Type: 
  Country: None (occurrence: None)
  Receive Date: 20110707
  Receipt Date: 20110615
  Transmission Date: 20111222
  Serious: Yes (Other)
  Sender: FDA-Public Use
  Company Number: US-GLAXOSMITHKLINE-A0806068A

PATIENT
  Age: 68 Year
  Sex: Male
  Weight: 110 kg

DRUGS (4)
  1. GLIPIZIDE [Concomitant]
  2. METFORMIN HCL [Concomitant]
  3. LIPITOR [Concomitant]
  4. AVANDIA [Suspect]
     Indication: DIABETES MELLITUS
     Dosage: 8MG PER DAY
     Route: 048
     Dates: start: 20040315, end: 20070711

REACTIONS (3)
  - MYOCARDIAL INFARCTION [None]
  - CORONARY ARTERY DISEASE [None]
  - BUNDLE BRANCH BLOCK LEFT [None]
